FAERS Safety Report 4504427-9 (Version None)
Quarter: 2004Q4

REPORT INFORMATION
  Report Type: 
  Country: None (occurrence: None)
  Receive Date: 20041117
  Receipt Date: 20041117
  Transmission Date: 20050328
  Serious: Yes (Hospitalization)
  Sender: FDA-Public Use
  Company Number: None

PATIENT
  Age: 55 Year
  Sex: Male

DRUGS (8)
  1. LAMOTRIGINE [Suspect]
     Indication: AFFECTIVE DISORDER
     Dosage: 25 MG QD
     Dates: start: 20040712
  2. NITROGLYCERIN [Concomitant]
  3. GUAIFENESIN [Concomitant]
  4. ABILIFY [Concomitant]
  5. AMANTADINE [Concomitant]
  6. TEGRASOSIN [Concomitant]
  7. BENZTROPINE MESYLATE [Concomitant]
  8. ASPIRIN [Concomitant]

REACTIONS (1)
  - ANGIONEUROTIC OEDEMA [None]
